FAERS Safety Report 7674029-4 (Version None)
Quarter: 2011Q3

REPORT INFORMATION
  Report Type: 
  Country: None (occurrence: None)
  Receive Date: 20110810
  Receipt Date: 20110803
  Transmission Date: 20111222
  Serious: Yes (Hospitalization)
  Sender: FDA-Public Use
  Company Number: US-BRISTOL-MYERS SQUIBB COMPANY-15426661

PATIENT
  Age: 72 Year
  Sex: Male
  Weight: 71 kg

DRUGS (25)
  1. COUMADIN [Concomitant]
     Indication: DEEP VEIN THROMBOSIS
     Route: 060
  2. ATENOLOL [Concomitant]
  3. AMIODARONE HCL [Concomitant]
     Route: 065
  4. SYMBICORT [Concomitant]
  5. ESOMEPRAZOLE MAGNESIUM [Concomitant]
  6. FLUTICASONE PROPIONATE [Concomitant]
  7. SALMETEROL XINAFOATE [Concomitant]
  8. ADVAIR DISKUS 100/50 [Concomitant]
  9. MAGNESIUM [Concomitant]
  10. ATORVASTATIN [Concomitant]
  11. ENALAPRIL MALEATE [Concomitant]
     Route: 065
  12. FUROSEMIDE [Concomitant]
  13. TAMSULOSIN HCL [Concomitant]
  14. BUDESONIDE [Concomitant]
  15. FORMOTEROL FUMARATE [Concomitant]
  16. GEMZAR [Suspect]
     Indication: NON-SMALL CELL LUNG CANCER
     Dosage: DRUG INTERRUPTED ON 12NOV2010(57DY)NO OF INFISIONS:5 HELD ON:18NOV10,RESUMED ON 3DEC10
     Route: 042
     Dates: start: 20100917
  17. PLAVIX [Concomitant]
     Route: 065
  18. LISINOPRIL [Concomitant]
  19. AMLODIPINE [Concomitant]
  20. CARBOPLATIN [Suspect]
     Indication: NON-SMALL CELL LUNG CANCER
     Dosage: DRUG INTERRUPTED ON 12NOV2010(57DY).NO OF INFISIONS:3 HELD ON:18NOV10
     Route: 042
     Dates: start: 20100917
  21. LIPITOR [Concomitant]
     Route: 065
  22. SIMVASTATIN [Concomitant]
  23. NEXIUM [Concomitant]
  24. CETUXIMAB [Suspect]
     Indication: NON-SMALL CELL LUNG CANCER
     Dosage: DRUG INTERRUPTED ON 12NOV2010(57DY)NO OF INFISIONS:7 HELD ON:18NOV10,RESUMED ON 3DEC10
     Route: 042
     Dates: start: 20100917
  25. DIGOXIN [Concomitant]

REACTIONS (4)
  - DYSPNOEA [None]
  - PARAESTHESIA [None]
  - ACUTE MYOCARDIAL INFARCTION [None]
  - CHEST PAIN [None]
